FAERS Safety Report 24916422 (Version 2)
Quarter: 2025Q1

REPORT INFORMATION
  Report Type: Spontaneous
  Country: US (occurrence: US)
  Receive Date: 20250203
  Receipt Date: 20250228
  Transmission Date: 20250409
  Serious: Yes (Other)
  Sender: MYLAN
  Company Number: US-MYLANLABS-2025M1008549

PATIENT
  Age: 80 Year
  Sex: Female
  Weight: 49.44 kg

DRUGS (4)
  1. LEVOTHYROXINE SODIUM [Suspect]
     Active Substance: LEVOTHYROXINE SODIUM
     Indication: Product used for unknown indication
     Dosage: 88 MICROGRAM, QD (ONCE A DAY)
     Dates: start: 19990101
  2. LEVOTHYROXINE SODIUM [Suspect]
     Active Substance: LEVOTHYROXINE SODIUM
     Dosage: 88 MICROGRAM, QD (ONCE A DAY)
     Route: 048
     Dates: start: 19990101
  3. LEVOTHYROXINE SODIUM [Suspect]
     Active Substance: LEVOTHYROXINE SODIUM
     Dosage: 88 MICROGRAM, QD (ONCE A DAY)
     Route: 048
     Dates: start: 19990101
  4. LEVOTHYROXINE SODIUM [Suspect]
     Active Substance: LEVOTHYROXINE SODIUM
     Dosage: 88 MICROGRAM, QD (ONCE A DAY)
     Dates: start: 19990101

REACTIONS (3)
  - Blood thyroid stimulating hormone increased [Not Recovered/Not Resolved]
  - Recalled product administered [Unknown]
  - Recalled product [Unknown]

NARRATIVE: CASE EVENT DATE: 20250124
